FAERS Safety Report 9547702 (Version 1)
Quarter: 2013Q2

REPORT INFORMATION
  Report Type: Spontaneous
  Country: US (occurrence: None)
  Receive Date: 20130626
  Receipt Date: 20130626
  Transmission Date: 20140414
  Serious: Yes (Other)
  Sender: FDA-Public Use
  Company Number: 478663

PATIENT
  Sex: 0

DRUGS (1)
  1. PRECEDEX [Suspect]
     Indication: SEDATION
     Route: 042

REACTIONS (4)
  - Extravasation [None]
  - Infusion site discolouration [None]
  - Implant site effusion [None]
  - Off label use [None]
